FAERS Safety Report 6128242-8 (Version None)
Quarter: 2009Q1

REPORT INFORMATION
  Report Type: 
  Country: None (occurrence: None)
  Receive Date: 20090319
  Receipt Date: 20090305
  Transmission Date: 20090719
  Serious: Yes (Other)
  Sender: FDA-Public Use
  Company Number: 1-17768743

PATIENT
  Age: 47 Year
  Sex: Female

DRUGS (2)
  1. DYNACIN [Suspect]
     Indication: APHTHOUS STOMATITIS
  2. DYNACIN [Suspect]
     Indication: MOUTH ULCERATION

REACTIONS (3)
  - GINGIVAL DISCOLOURATION [None]
  - THYROID CANCER [None]
  - TOOTH DISCOLOURATION [None]
